FAERS Safety Report 8409709-6 (Version None)
Quarter: 2012Q2

REPORT INFORMATION
  Report Type: 
  Country: None (occurrence: None)
  Receive Date: 20120529
  Receipt Date: 20120326
  Transmission Date: 20120825
  Serious: Yes (Hospitalization, Other)
  Sender: FDA-Public Use
  Company Number: 2011SP040438

PATIENT
  Age: 56 Year
  Sex: Female

DRUGS (10)
  1. PEG-INTRON [Suspect]
     Indication: HEPATITIS C
     Dosage: 0.4 MCG, 0.3 MCG,
     Dates: end: 20091007
  2. PEG-INTRON [Suspect]
     Indication: HEPATITIS C
     Dosage: 0.4 MCG, 0.3 MCG,
     Dates: start: 20080104, end: 20081003
  3. PEG-INTRON [Suspect]
     Indication: HEPATITIS C
     Dosage: 0.4 MCG, 0.3 MCG,
     Dates: start: 20110817, end: 20120403
  4. VICTRELIS [Suspect]
  5. VICTRELIS [Suspect]
     Indication: HEPATITIS C
     Dosage: 800 MG;TID;PO
     Route: 048
     Dates: start: 20110914
  6. PROCRIT [Concomitant]
  7. RIBAVIRIN [Suspect]
     Indication: HEPATITIS C
     Dosage: ;;QD;QD;;
     Dates: start: 20080104, end: 20081003
  8. RIBAVIRIN [Suspect]
     Indication: HEPATITIS C
     Dosage: ;;QD;QD;;
     Dates: end: 20091007
  9. RIBAVIRIN [Suspect]
     Indication: HEPATITIS C
     Dosage: ;;QD;QD;;
     Dates: start: 20110817, end: 20120403
  10. VICTRELIS [Suspect]

REACTIONS (16)
  - ANAEMIA [None]
  - ASTHENIA [None]
  - WHITE BLOOD CELL COUNT DECREASED [None]
  - WEIGHT DECREASED [None]
  - EPISTAXIS [None]
  - BLOOD PRESSURE DECREASED [None]
  - CAPSULE PHYSICAL ISSUE [None]
  - DIABETES MELLITUS [None]
  - RASH [None]
  - FATIGUE [None]
  - NAUSEA [None]
  - HEADACHE [None]
  - LETHARGY [None]
  - DYSGEUSIA [None]
  - DYSPNOEA [None]
  - CAPILLARY DISORDER [None]
